FAERS Safety Report 23390511 (Version 5)
Quarter: 2024Q2

REPORT INFORMATION
  Report Type: Spontaneous
  Country: US (occurrence: US)
  Receive Date: 20240111
  Receipt Date: 20240626
  Transmission Date: 20240716
  Serious: Yes (Disabling, Other)
  Sender: FDA-Public Use
  Company Number: US-HORIZON THERAPEUTICS-HZN-2023-008428

PATIENT
  Age: 66 Year
  Sex: Female

DRUGS (14)
  1. TEPEZZA [Suspect]
     Active Substance: TEPROTUMUMAB-TRBW
     Indication: Endocrine ophthalmopathy
     Dosage: 650 MILLIGRAM (GIVEN OVER 90 MINUTES)
     Route: 042
     Dates: start: 20230106
  2. TEPEZZA [Suspect]
     Active Substance: TEPROTUMUMAB-TRBW
     Dosage: 1300 MILLIGRAM (GIVEN OVER 90 MINUTES)
     Route: 042
     Dates: start: 20230127
  3. TEPEZZA [Suspect]
     Active Substance: TEPROTUMUMAB-TRBW
     Dosage: 1300 MILLIGRAM (GIVEN OVER ONE HOUR)
     Route: 042
     Dates: start: 20230217
  4. TEPEZZA [Suspect]
     Active Substance: TEPROTUMUMAB-TRBW
     Dosage: 1300 MILLIGRAM (GIVEN OVER ONE HOUR)
     Route: 042
     Dates: start: 20230310
  5. TEPEZZA [Suspect]
     Active Substance: TEPROTUMUMAB-TRBW
     Dosage: 1300 MILLIGRAM (GIVEN OVER ONE HOUR)
     Route: 042
     Dates: start: 20230331
  6. TEPEZZA [Suspect]
     Active Substance: TEPROTUMUMAB-TRBW
     Dosage: 1300 MILLIGRAM (GIVEN OVER ONE HOUR)
     Route: 042
     Dates: start: 20230421
  7. TEPEZZA [Suspect]
     Active Substance: TEPROTUMUMAB-TRBW
     Dosage: 1209 MILLIGRAM (GIVEN OVER ONE HOUR)
     Route: 042
     Dates: start: 20230512
  8. TEPEZZA [Suspect]
     Active Substance: TEPROTUMUMAB-TRBW
     Dosage: 1209 MILLIGRAM (GIVEN OVER ONE HOUR)
     Route: 042
     Dates: start: 20230605
  9. CLOPIDOGREL HYDROCHLORIDE [Concomitant]
     Active Substance: CLOPIDOGREL HYDROCHLORIDE
     Dosage: UNK, QD
     Route: 048
  10. LEVOTHYROXINE SODIUM [Concomitant]
     Active Substance: LEVOTHYROXINE SODIUM
     Dosage: UNK
     Route: 048
  11. NIFEDIPINE [Concomitant]
     Active Substance: NIFEDIPINE
     Dosage: UNK, QD
     Route: 048
  12. PREDNISONE [Concomitant]
     Active Substance: PREDNISONE
     Dosage: UNK
     Route: 048
  13. SPIRONOLACTONE [Concomitant]
     Active Substance: SPIRONOLACTONE
     Dosage: UNK, BID
     Route: 048
  14. Venlafaxine alem xr [Concomitant]
     Dosage: UNK, QD
     Route: 048

REACTIONS (24)
  - Deafness permanent [Not Recovered/Not Resolved]
  - Disability [Unknown]
  - Physical disability [Unknown]
  - Injury [Unknown]
  - Pain [Unknown]
  - Emotional distress [Unknown]
  - Infusion site pruritus [Unknown]
  - Anxiety [Unknown]
  - Concomitant disease aggravated [Unknown]
  - Impaired quality of life [Unknown]
  - Discomfort [Unknown]
  - Auditory disorder [Unknown]
  - Ear pain [Unknown]
  - Feeling abnormal [Unknown]
  - Autoscopy [Unknown]
  - Dehydration [Unknown]
  - Weight decreased [Unknown]
  - Product quality issue [Unknown]
  - Tinnitus [Unknown]
  - Fatigue [Recovered/Resolved]
  - Muscle spasms [Unknown]
  - Eye pain [Unknown]
  - Economic problem [Unknown]
  - Asthenopia [Unknown]

NARRATIVE: CASE EVENT DATE: 20230101
